FAERS Safety Report 6245241-6 (Version None)
Quarter: 2009Q2

REPORT INFORMATION
  Report Type: 
  Country: None (occurrence: None)
  Receive Date: 20090619
  Receipt Date: 20090414
  Transmission Date: 20091009
  Serious: No
  Sender: FDA-Public Use
  Company Number: ALL1-2009-00986

PATIENT
  Age: 66 Year
  Sex: Female
  Weight: 29.5 kg

DRUGS (12)
  1. VYVANSE [Suspect]
     Indication: ATTENTION DEFICIT/HYPERACTIVITY DISORDER
     Dosage: MG, 1X/DA; QD 70MG CAPSULE DILUTED IN 7ML OF WATER, DRINK 5ML TODAY, THEN 2ML TOMORROW, ORAL
     Route: 048
     Dates: start: 20090413
  2. ZANAFLEX [Concomitant]
  3. AMBIEN [Concomitant]
  4. TEMAZEPAM [Concomitant]
  5. SIMVASTATIN [Concomitant]
  6. LYRICA [Concomitant]
  7. VIVAGLOBIN (IMMUNOGLOBULIN) [Concomitant]
  8. XANAX [Concomitant]
  9. SYNTHROID [Concomitant]
  10. HYDROCHLOROTHIAZIDE [Concomitant]
  11. MOBIC [Concomitant]
  12. EVISTA /01303201/ (RALOXIFENE) [Concomitant]

REACTIONS (4)
  - DISTURBANCE IN ATTENTION [None]
  - FEELING ABNORMAL [None]
  - INSOMNIA [None]
  - WRONG TECHNIQUE IN DRUG USAGE PROCESS [None]
